FAERS Safety Report 14714834 (Version 2)
Quarter: 2018Q2

REPORT INFORMATION
  Report Type: Spontaneous
  Country: US (occurrence: US)
  Receive Date: 20180404
  Receipt Date: 20180422
  Transmission Date: 20180711
  Serious: Yes (Hospitalization, Other)
  Sender: FDA-Public Use
  Company Number: US-APOTEX-2018AP009357

PATIENT
  Age: 71 Year
  Sex: Male

DRUGS (27)
  1. VANCOMYCIN [Concomitant]
     Active Substance: VANCOMYCIN
     Dosage: UNK
     Route: 048
  2. OLANZAPINE. [Suspect]
     Active Substance: OLANZAPINE
     Indication: PSYCHOTIC SYMPTOM
     Dosage: 2.5 MG, Q.H.S.
     Route: 048
  3. LORAZEPAM. [Suspect]
     Active Substance: LORAZEPAM
     Dosage: 2 MG, Q.4H.
     Route: 042
  4. DIAZEPAM. [Concomitant]
     Active Substance: DIAZEPAM
     Indication: CATATONIA
     Dosage: UP TO 60 MG DAILY
     Route: 042
  5. HALOPERIDOL. [Suspect]
     Active Substance: HALOPERIDOL
     Indication: AGITATION
     Dosage: UNK
     Route: 065
  6. TAMULOSIN [Concomitant]
     Active Substance: TAMSULOSIN
     Indication: PRODUCT USED FOR UNKNOWN INDICATION
     Dosage: 0.4 MG, Q.H.S.
     Route: 065
  7. VALPROIC ACID. [Suspect]
     Active Substance: VALPROIC ACID
     Dosage: 750 MG, Q.H.S.
     Route: 048
  8. ZIPRASIDONE. [Suspect]
     Active Substance: ZIPRASIDONE
     Indication: DELUSION
     Dosage: 20 MG, BID
     Route: 048
  9. CEFTRIAXONE. [Concomitant]
     Active Substance: CEFTRIAXONE
     Indication: URINARY TRACT INFECTION
     Route: 042
  10. VALPROIC ACID. [Suspect]
     Active Substance: VALPROIC ACID
     Dosage: 125 MG, DAILY
     Route: 048
  11. VALPROIC ACID. [Suspect]
     Active Substance: VALPROIC ACID
     Dosage: 250 MG, Q.6H
     Route: 042
  12. VALPROIC ACID. [Suspect]
     Active Substance: VALPROIC ACID
     Dosage: 1000 MG, Q.AM
     Route: 048
  13. VALPROIC ACID. [Suspect]
     Active Substance: VALPROIC ACID
     Dosage: 1500 MG, Q.H.S.
     Route: 048
  14. LORAZEPAM. [Suspect]
     Active Substance: LORAZEPAM
     Indication: CATATONIA
     Dosage: 2 MG, BID
     Route: 042
  15. AMLODIPINE [Concomitant]
     Active Substance: AMLODIPINE BESYLATE
     Indication: PRODUCT USED FOR UNKNOWN INDICATION
     Dosage: 2.5 MG, DAILY
     Route: 065
  16. ATENOLOL. [Concomitant]
     Active Substance: ATENOLOL
     Indication: PRODUCT USED FOR UNKNOWN INDICATION
     Dosage: 25 MG, DAILY
     Route: 065
  17. SIMVASTATIN. [Concomitant]
     Active Substance: SIMVASTATIN
     Indication: PRODUCT USED FOR UNKNOWN INDICATION
     Dosage: 5 MG, Q.H.S.
     Route: 065
  18. VALPROIC ACID. [Suspect]
     Active Substance: VALPROIC ACID
     Indication: AGITATION
     Dosage: 250 MG, Q.2H.
     Route: 042
  19. LORAZEPAM. [Suspect]
     Active Substance: LORAZEPAM
     Dosage: 2 MG, TID
     Route: 042
  20. HALOPERIDOL. [Suspect]
     Active Substance: HALOPERIDOL
     Indication: DELIRIUM
     Dosage: UNK
     Route: 051
  21. AMPICILLIN [Concomitant]
     Active Substance: AMPICILLIN
     Indication: URINARY TRACT INFECTION
     Route: 065
  22. VALPROIC ACID. [Suspect]
     Active Substance: VALPROIC ACID
     Dosage: 250 MG, Q.AM
     Route: 048
  23. ZIPRASIDONE. [Suspect]
     Active Substance: ZIPRASIDONE
     Indication: PSYCHOTIC DISORDER
     Dosage: UNK
     Route: 030
  24. LORAZEPAM. [Suspect]
     Active Substance: LORAZEPAM
     Dosage: 1 MG, TID
     Route: 042
  25. VANCOMYCIN [Concomitant]
     Active Substance: VANCOMYCIN
     Indication: CLOSTRIDIUM DIFFICILE INFECTION
     Dosage: UNK
     Route: 048
  26. DIVALPROEX [Concomitant]
     Active Substance: DIVALPROEX SODIUM
     Indication: PRODUCT USED FOR UNKNOWN INDICATION
     Dosage: 125 MG, DAILY
     Route: 048
  27. ASPIRIN                            /00002701/ [Concomitant]
     Active Substance: ASPIRIN
     Indication: PRODUCT USED FOR UNKNOWN INDICATION
     Dosage: 81 MG, DAILY
     Route: 065

REACTIONS (4)
  - Somnolence [Unknown]
  - Catatonia [Recovering/Resolving]
  - Drug withdrawal convulsions [Unknown]
  - Drug ineffective [Unknown]
